FAERS Safety Report 13375493 (Version 2)
Quarter: 2017Q2

REPORT INFORMATION
  Report Type: Spontaneous
  Country: IN (occurrence: IN)
  Receive Date: 20170328
  Receipt Date: 20170406
  Transmission Date: 20170830
  Serious: Yes (Hospitalization, Other)
  Sender: FDA-Public Use
  Company Number: IN-009507513-1703IND011936

PATIENT
  Age: 42 Month
  Sex: Female
  Weight: 13 kg

DRUGS (4)
  1. DAPTOMYCIN. [Suspect]
     Active Substance: DAPTOMYCIN
     Dosage: 12 MG/KG, EVERY 48 HOURS AT THE END OF HEMODIALYSIS
     Route: 042
  2. DAPTOMYCIN. [Suspect]
     Active Substance: DAPTOMYCIN
     Indication: ENDOCARDITIS STAPHYLOCOCCAL
     Dosage: 12MG/KG/D ON DAY 6
     Route: 042
  3. VANCOMYCIN [Concomitant]
     Active Substance: VANCOMYCIN
     Indication: EVIDENCE BASED TREATMENT
     Dosage: 20 MG/KG, QD
  4. RIFAMPIN. [Concomitant]
     Active Substance: RIFAMPIN
     Indication: ENDOCARDITIS
     Dosage: 10 MG/KG, BID

REACTIONS (4)
  - Gastritis haemorrhagic [Unknown]
  - Off label use [Unknown]
  - Acute kidney injury [Recovered/Resolved]
  - Coagulopathy [Recovered/Resolved]
